FAERS Safety Report 10964758 (Version 1)
Quarter: 2015Q1

REPORT INFORMATION
  Report Type: Spontaneous
  Country: US (occurrence: US)
  Receive Date: 20150330
  Receipt Date: 20150330
  Transmission Date: 20150721
  Serious: No
  Sender: FDA-Public Use
  Company Number: US-LEO PHARMA-226053

PATIENT
  Age: 62 Year
  Sex: Female

DRUGS (2)
  1. PICATO [Suspect]
     Active Substance: INGENOL MEBUTATE
     Indication: ACTINIC KERATOSIS
  2. PICATO [Suspect]
     Active Substance: INGENOL MEBUTATE
     Indication: BASAL CELL CARCINOMA

REACTIONS (17)
  - Skin erosion [Unknown]
  - Application site scar [Recovering/Resolving]
  - Application site induration [Recovering/Resolving]
  - Application site erosion [Unknown]
  - Dry skin [Unknown]
  - Insomnia [Recovered/Resolved]
  - Application site ulcer [Recovered/Resolved]
  - Product use issue [Unknown]
  - Application site dryness [Unknown]
  - Application site pruritus [Recovering/Resolving]
  - Wrong technique in drug usage process [Unknown]
  - Skin exfoliation [Unknown]
  - Pyrexia [Recovered/Resolved]
  - Chills [Recovered/Resolved]
  - Application site erythema [Recovering/Resolving]
  - Application site exfoliation [Unknown]
  - Erythema [Unknown]
